FAERS Safety Report 4417935-6 (Version None)
Quarter: 2004Q2

REPORT INFORMATION
  Report Type: 
  Country: None (occurrence: None)
  Receive Date: 20040622
  Receipt Date: 20040216
  Transmission Date: 20050107
  Serious: Yes (Death)
  Sender: FDA-Public Use
  Company Number: 359134

PATIENT
  Age: 50 Year
  Sex: Male

DRUGS (1)
  1. XELODA [Suspect]
     Indication: CARCINOMA
     Dosage: ORAL
     Route: 048

REACTIONS (2)
  - CARCINOMA [None]
  - DISEASE PROGRESSION [None]
